FAERS Safety Report 6847443-4 (Version None)
Quarter: 2010Q3

REPORT INFORMATION
  Report Type: 
  Country: None (occurrence: None)
  Receive Date: 20100716
  Receipt Date: 20100709
  Transmission Date: 20110219
  Serious: Yes (Other)
  Sender: FDA-Public Use
  Company Number: JP-PFIZER INC-2010086048

PATIENT
  Age: 83 Year
  Sex: Female

DRUGS (2)
  1. SOLU-CORTEF [Suspect]
     Indication: ASTHMA
     Dosage: 300 MG, 1X/DAY
  2. PREDONINE [Concomitant]
     Indication: COLLAGEN DISORDER
     Dosage: UNK

REACTIONS (1)
  - GENERALISED OEDEMA [None]
